FAERS Safety Report 5498017-1 (Version None)
Quarter: 2007Q4

REPORT INFORMATION
  Report Type: 
  Country: None (occurrence: None)
  Receive Date: 20071025
  Receipt Date: 20071016
  Transmission Date: 20080405
  Serious: Yes (Other)
  Sender: FDA-Public Use
  Company Number: US-ELI_LILLY_AND_COMPANY-US200710004320

PATIENT
  Age: 44 Year
  Sex: Female
  Weight: 56.689 kg

DRUGS (3)
  1. CYMBALTA [Suspect]
     Indication: PAIN
     Dosage: 1 D/F, UNK
  2. TOPIRAMATE [Concomitant]
     Indication: MIGRAINE PROPHYLAXIS
     Dosage: 600 MG, DAILY (1/D)
     Route: 048
     Dates: start: 20050419
  3. QUETIAPINE FUMARATE [Concomitant]
     Indication: INSOMNIA

REACTIONS (4)
  - ALANINE AMINOTRANSFERASE INCREASED [None]
  - ASPARTATE AMINOTRANSFERASE INCREASED [None]
  - BLOOD ALKALINE PHOSPHATASE INCREASED [None]
  - DIARRHOEA [None]
